FAERS Safety Report 18502048 (Version 1)
Quarter: 2020Q4

REPORT INFORMATION
  Report Type: Spontaneous
  Country: US (occurrence: US)
  Receive Date: 20201113
  Receipt Date: 20201113
  Transmission Date: 20210114
  Serious: Yes (Other)
  Sender: FDA-Public Use
  Company Number: US-ASTRAZENECA-2020SF47729

PATIENT
  Age: 736 Month
  Sex: Male
  Weight: 96.2 kg

DRUGS (3)
  1. QUETIAPINE FUMARATE IR [Suspect]
     Active Substance: QUETIAPINE FUMARATE
     Route: 048
  2. QUETIAPINE FUMARATE XR [Suspect]
     Active Substance: QUETIAPINE FUMARATE
     Indication: ANXIETY
     Route: 048
     Dates: start: 201906
  3. QUETIAPINE FUMARATE XR [Suspect]
     Active Substance: QUETIAPINE FUMARATE
     Indication: ANXIETY
     Route: 048

REACTIONS (14)
  - Continuous positive airway pressure [Unknown]
  - Nightmare [Unknown]
  - Tremor [Unknown]
  - Asthma [Unknown]
  - Condition aggravated [Unknown]
  - Dizziness postural [Unknown]
  - Tongue biting [Unknown]
  - Dysarthria [Unknown]
  - Balance disorder [Unknown]
  - Movement disorder [Unknown]
  - Heart rate decreased [Unknown]
  - Compulsive cheek biting [Unknown]
  - Tongue movement disturbance [Unknown]
  - Ventricular extrasystoles [Unknown]

NARRATIVE: CASE EVENT DATE: 201906
